FAERS Safety Report 15633177 (Version 2)
Quarter: 2018Q4

REPORT INFORMATION
  Report Type: Report from Study
  Country: US (occurrence: US)
  Receive Date: 20181119
  Receipt Date: 20181218
  Transmission Date: 20190205
  Serious: Yes (Death, Hospitalization)
  Sender: FDA-Public Use
  Company Number: US-EXELIXIS-CABO-18017058

PATIENT
  Age: 27 Year
  Sex: Female

DRUGS (25)
  1. BENADRYL [Concomitant]
     Active Substance: DIPHENHYDRAMINE HYDROCHLORIDE
  2. PACLITAXEL. [Concomitant]
     Active Substance: PACLITAXEL
  3. DRONABINOL. [Concomitant]
     Active Substance: DRONABINOL
  4. MORPHINE SULFATE. [Concomitant]
     Active Substance: MORPHINE SULFATE
  5. DURAGESIC [Concomitant]
     Active Substance: FENTANYL
     Indication: PAIN
  6. SENOKOT [Concomitant]
     Active Substance: SENNOSIDES
  7. FLEXERIL [Concomitant]
     Active Substance: CYCLOBENZAPRINE HYDROCHLORIDE
     Indication: MUSCLE SPASMS
  8. DESYREL [Concomitant]
     Active Substance: TRAZODONE HYDROCHLORIDE
     Indication: SLEEP DISORDER
  9. ATIVAN [Concomitant]
     Active Substance: LORAZEPAM
     Indication: ANXIETY
  10. VENOFER [Concomitant]
     Active Substance: IRON SUCROSE
  11. CABOMETYX [Suspect]
     Active Substance: CABOZANTINIB S-MALATE
     Indication: METASTATIC RENAL CELL CARCINOMA
     Dosage: 40 MG, QD
     Route: 048
     Dates: start: 20180912, end: 20181021
  12. PHENERGAN [Concomitant]
     Active Substance: PROMETHAZINE HYDROCHLORIDE
     Indication: NAUSEA
  13. SCOPOLAMINE PCH [Concomitant]
  14. POTASSIUM CHLORIDE. [Concomitant]
     Active Substance: POTASSIUM CHLORIDE
  15. ZOFRAN [Concomitant]
     Active Substance: ONDANSETRON HYDROCHLORIDE
  16. ALOXI [Concomitant]
     Active Substance: PALONOSETRON HYDROCHLORIDE
  17. TYLENOL WITH CODEINE [Concomitant]
     Active Substance: ACETAMINOPHEN\CODEINE PHOSPHATE
     Indication: PAIN
  18. PROCHLORPERAZINE. [Concomitant]
     Active Substance: PROCHLORPERAZINE
  19. PEPCID [Concomitant]
     Active Substance: FAMOTIDINE
  20. TRIAMCINOLONE ACETONIDE. [Concomitant]
     Active Substance: TRIAMCINOLONE ACETONIDE
  21. LIDOCAINE W/PRILOCAINE [Concomitant]
     Active Substance: LIDOCAINE\PRILOCAINE
  22. LIDOCAINE. [Concomitant]
     Active Substance: LIDOCAINE
  23. HYDROMORPHONE [Concomitant]
     Active Substance: HYDROMORPHONE
  24. MIRALAX [Concomitant]
     Active Substance: POLYETHYLENE GLYCOL 3350
  25. DECADRON [Concomitant]
     Active Substance: DEXAMETHASONE

REACTIONS (9)
  - Renal failure [Unknown]
  - Pneumonia klebsiella [Unknown]
  - Septic shock [Unknown]
  - Malignant neoplasm progression [Fatal]
  - Pleural effusion [Unknown]
  - Vomiting [Unknown]
  - Peripheral swelling [Unknown]
  - Pain in extremity [Unknown]
  - Nausea [Unknown]

NARRATIVE: CASE EVENT DATE: 201810
